FAERS Safety Report 14068991 (Version 5)
Quarter: 2018Q2

REPORT INFORMATION
  Report Type: Spontaneous
  Country: JP (occurrence: JP)
  Receive Date: 20171010
  Receipt Date: 20180430
  Transmission Date: 20180711
  Serious: Yes (Hospitalization, Other)
  Sender: FDA-Public Use
  Company Number: JP-PFIZER INC-2017429889

PATIENT
  Age: 68 Year
  Sex: Female

DRUGS (2)
  1. OXALIPLATIN. [Suspect]
     Active Substance: OXALIPLATIN
     Indication: GASTRIC CANCER STAGE IV
     Dosage: 100 MG/M2, UNK
     Dates: start: 201510, end: 2015
  2. TS-1 [Suspect]
     Active Substance: GIMERACIL\OTERACIL\TEGAFUR
     Indication: GASTRIC CANCER STAGE IV
     Dosage: 100 MG, DAILY
     Dates: start: 201510, end: 2015

REACTIONS (2)
  - Gastrointestinal necrosis [Recovering/Resolving]
  - Gastric perforation [Recovering/Resolving]

NARRATIVE: CASE EVENT DATE: 201510
